FAERS Safety Report 8822595 (Version 2)
Quarter: 2012Q4

REPORT INFORMATION
  Report Type: 
  Country: US (occurrence: US)
  Receive Date: 20121003
  Receipt Date: 20121017
  Transmission Date: 20130627
  Serious: Yes (Death, Hospitalization)
  Sender: FDA-Public Use
  Company Number: US-ACTELION-A-US2012-71010

PATIENT
  Age: 64 Year
  Sex: Male

DRUGS (7)
  1. VELETRI [Suspect]
     Indication: PULMONARY ARTERIAL HYPERTENSION
     Dosage: 81 ng/kg, per min
     Route: 042
     Dates: start: 20110607, end: 20120921
  2. SILDENAFIL [Concomitant]
     Indication: PULMONARY ARTERIAL HYPERTENSION
  3. COUMADIN [Concomitant]
  4. FUROSEMIDE [Concomitant]
  5. NORVASC [Concomitant]
  6. DIGOXIN [Concomitant]
  7. SPIRONOLACTONE [Concomitant]

REACTIONS (8)
  - Septic shock [Not Recovered/Not Resolved]
  - Renal failure acute [Recovered/Resolved with Sequelae]
  - Catheter placement [Unknown]
  - Pericardial effusion [Unknown]
  - Chest pain [Recovered/Resolved]
  - Upper gastrointestinal haemorrhage [Fatal]
  - Unresponsive to stimuli [Unknown]
  - Clostridium difficile colitis [Not Recovered/Not Resolved]
